FAERS Safety Report 9004020 (Version 1)
Quarter: 2013Q1

REPORT INFORMATION
  Report Type: Spontaneous
  Country: US (occurrence: US)
  Receive Date: 20130108
  Receipt Date: 20130108
  Transmission Date: 20140127
  Serious: Yes (Hospitalization, Disabling, Other)
  Sender: FDA-Public Use
  Company Number: US-009507513-2010SP028345

PATIENT
  Sex: 0

DRUGS (2)
  1. NUVARING [Suspect]
     Indication: MENSTRUAL CYCLE MANAGEMENT
     Dates: start: 20080423, end: 20080515
  2. CODEINE PHOSPHATE [Concomitant]

REACTIONS (10)
  - Hypercoagulation [Unknown]
  - Pneumonia [Unknown]
  - Dehydration [Unknown]
  - Pulmonary embolism [Recovered/Resolved]
  - Hepatic lesion [Unknown]
  - Anaemia [Unknown]
  - Off label use [Unknown]
  - Deep vein thrombosis [Unknown]
  - Muscle spasms [Unknown]
  - Antiphospholipid syndrome [Unknown]
